FAERS Safety Report 12632838 (Version 2)
Quarter: 2016Q3

REPORT INFORMATION
  Report Type: Spontaneous
  Country: US (occurrence: US)
  Receive Date: 20160808
  Receipt Date: 20160808
  Transmission Date: 20161109
  Serious: Yes (Hospitalization, Other)
  Sender: FDA-Public Use
  Company Number: US-BEH-2015057194

PATIENT
  Sex: Female
  Weight: 110 kg

DRUGS (54)
  1. NEXIUM [Concomitant]
     Active Substance: ESOMEPRAZOLE MAGNESIUM
  2. ULTRAM [Concomitant]
     Active Substance: TRAMADOL HYDROCHLORIDE
  3. BENADRYL [Concomitant]
     Active Substance: DIPHENHYDRAMINE HYDROCHLORIDE
  4. NASONEX [Concomitant]
     Active Substance: MOMETASONE FUROATE
  5. FISH OIL [Concomitant]
     Active Substance: FISH OIL
  6. HIZENTRA [Suspect]
     Active Substance: HUMAN IMMUNOGLOBULIN G
     Indication: PRODUCT USED FOR UNKNOWN INDICATION
     Route: 058
     Dates: start: 20100518
  7. ESTER C [Concomitant]
  8. BOOST [Concomitant]
     Active Substance: DIETARY SUPPLEMENT
  9. IRON [Concomitant]
     Active Substance: IRON
  10. FLOVENT [Concomitant]
     Active Substance: FLUTICASONE PROPIONATE
  11. LOSARTAN. [Concomitant]
     Active Substance: LOSARTAN
  12. DUONEB [Concomitant]
     Active Substance: ALBUTEROL SULFATE\IPRATROPIUM BROMIDE
  13. CENTRUM CARDIO [Concomitant]
     Active Substance: VITAMINS
  14. AF-LOPERAMIDE [Concomitant]
  15. XALTAN [Concomitant]
  16. DIPHENHYDRAMINE. [Concomitant]
     Active Substance: DIPHENHYDRAMINE
  17. LIDOCAINE. [Concomitant]
     Active Substance: LIDOCAINE
  18. EPIPEN [Concomitant]
     Active Substance: EPINEPHRINE
  19. MAGNESIUM [Concomitant]
     Active Substance: MAGNESIUM
  20. PROMETHAZINE [Concomitant]
     Active Substance: PROMETHAZINE\PROMETHAZINE HYDROCHLORIDE
  21. CLARITIN [Concomitant]
     Active Substance: LORATADINE
  22. XOPENEX [Concomitant]
     Active Substance: LEVALBUTEROL HYDROCHLORIDE
  23. HUMALOG [Concomitant]
     Active Substance: INSULIN LISPRO
  24. SINGULAIR [Concomitant]
     Active Substance: MONTELUKAST SODIUM
  25. NORVASC [Concomitant]
     Active Substance: AMLODIPINE BESYLATE
  26. HYDROCODONE [Concomitant]
     Active Substance: HYDROCODONE
  27. MECLIZINE [Concomitant]
     Active Substance: MECLIZINE HYDROCHLORIDE
  28. ALDACTONE [Concomitant]
     Active Substance: SPIRONOLACTONE
  29. TRIAZOLAM. [Concomitant]
     Active Substance: TRIAZOLAM
  30. PULMICORT TURBUHALER [Concomitant]
     Active Substance: BUDESONIDE
  31. ZOLPIDEM [Concomitant]
     Active Substance: ZOLPIDEM\ZOLPIDEM TARTRATE
  32. ASPIRIN. [Concomitant]
     Active Substance: ASPIRIN
  33. PROCTOFOAM [Concomitant]
     Active Substance: PRAMOXINE HYDROCHLORIDE
  34. AMOXICILLIN. [Concomitant]
     Active Substance: AMOXICILLIN
  35. OXYGEN. [Concomitant]
     Active Substance: OXYGEN
  36. HIZENTRA [Suspect]
     Active Substance: HUMAN IMMUNOGLOBULIN G
     Indication: ASTHMA
     Route: 058
     Dates: start: 20100518
  37. HIZENTRA [Suspect]
     Active Substance: HUMAN IMMUNOGLOBULIN G
     Indication: PRODUCT USED FOR UNKNOWN INDICATION
     Route: 058
     Dates: start: 20100518
  38. TESSALON [Concomitant]
     Active Substance: BENZONATATE
  39. FLAGYL [Concomitant]
     Active Substance: METRONIDAZOLE\METRONIDAZOLE HYDROCHLORIDE
  40. NYSTATIN. [Concomitant]
     Active Substance: NYSTATIN
  41. ALBUTEROL. [Concomitant]
     Active Substance: ALBUTEROL
  42. CALCIUM [Concomitant]
     Active Substance: CALCIUM
  43. HYDROCHLORTHIAZIDE [Concomitant]
     Active Substance: HYDROCHLOROTHIAZIDE
  44. COMBIVENT [Concomitant]
     Active Substance: ALBUTEROL SULFATE\IPRATROPIUM BROMIDE
  45. SUPER B COMPLEX [Concomitant]
     Active Substance: CYANOCOBALAMIN\DEXPANTHENOL\NIACINAMIDE\PYRIDOXINE HYDROCHLORIDE\RIBOFLAVIN 5^-PHOSPHATE SODIUM\THIAMINE HYDROCHLORIDE\VITAMIN B COMPLEX
  46. IBUPROFEN. [Concomitant]
     Active Substance: IBUPROFEN
  47. CIPROFLOXACIN. [Concomitant]
     Active Substance: CIPROFLOXACIN
  48. SILVADENE [Concomitant]
     Active Substance: SILVER SULFADIAZINE
  49. VITAMIN D [Concomitant]
     Active Substance: CHOLECALCIFEROL
  50. CARAFATE [Concomitant]
     Active Substance: SUCRALFATE
  51. GLIPIZIDE. [Concomitant]
     Active Substance: GLIPIZIDE
  52. FLUCONAZOLE. [Concomitant]
     Active Substance: FLUCONAZOLE
  53. MUCINEX [Concomitant]
     Active Substance: GUAIFENESIN
  54. ATIVAN [Concomitant]
     Active Substance: LORAZEPAM

REACTIONS (1)
  - Diverticulitis [Unknown]
